FAERS Safety Report 25050188 (Version 1)
Quarter: 2025Q1

REPORT INFORMATION
  Report Type: Spontaneous
  Country: RU (occurrence: RU)
  Receive Date: 20250307
  Receipt Date: 20250307
  Transmission Date: 20250409
  Serious: Yes (Other)
  Sender: JOHNSON AND JOHNSON
  Company Number: RU-JNJFOC-20250302513

PATIENT
  Age: 61 Year
  Sex: Female

DRUGS (8)
  1. DARZALEX [Suspect]
     Active Substance: DARATUMUMAB
     Indication: Plasma cell myeloma
     Route: 041
  2. BORTEZOMIB [Suspect]
     Active Substance: BORTEZOMIB
     Indication: Plasma cell myeloma
     Route: 058
  3. LENALIDOMIDE [Suspect]
     Active Substance: LENALIDOMIDE
     Indication: Plasma cell myeloma
     Route: 048
  4. DEXAMETHASONE [Suspect]
     Active Substance: DEXAMETHASONE
     Indication: Plasma cell myeloma
     Route: 048
  5. ACYCLOVIR [Concomitant]
     Active Substance: ACYCLOVIR
     Dosage: (CONTINUOUSLY)
     Route: 048
  6. OMEPRAZOLE [Concomitant]
     Active Substance: OMEPRAZOLE
     Dosage: (ON DAYS OF DEXAMETHASONE ADMINISTRATION)
     Route: 048
  7. CALCIUM CARBONATE\CHOLECALCIFEROL [Concomitant]
     Active Substance: CALCIUM CARBONATE\CHOLECALCIFEROL
     Route: 048
  8. DENOSUMAB [Concomitant]
     Active Substance: DENOSUMAB

REACTIONS (6)
  - Myeloma cast nephropathy [Unknown]
  - Neutropenia [Unknown]
  - Thrombocytopenia [Unknown]
  - Polyneuropathy [Unknown]
  - Secondary immunodeficiency [Unknown]
  - Upper respiratory tract infection [Unknown]
